FAERS Safety Report 5766460-9 (Version None)
Quarter: 2008Q2

REPORT INFORMATION
  Report Type: 
  Country: None (occurrence: None)
  Receive Date: 20080611
  Receipt Date: 20080522
  Transmission Date: 20081010
  Serious: No
  Sender: FDA-Public Use
  Company Number: US-BOEHRINGER INGELHEIM GMBH, GERMANY-2008-BP-08831YA

PATIENT
  Age: 87 Year
  Sex: Male

DRUGS (5)
  1. TAMSULOSIN HCL [Suspect]
     Route: 048
  2. CYCLOPENTOLATE HCL [Concomitant]
  3. PHENYLEPHRINE [Concomitant]
  4. NEPAFENAC [Concomitant]
  5. AMVISC PLUS [Concomitant]

REACTIONS (1)
  - FLOPPY IRIS SYNDROME [None]
